FAERS Safety Report 21561282 (Version 1)
Quarter: 2022Q4

REPORT INFORMATION
  Report Type: Spontaneous
  Country: CN (occurrence: CN)
  Receive Date: 20221107
  Receipt Date: 20221107
  Transmission Date: 20230113
  Serious: Yes (Disabling, Other)
  Sender: FDA-Public Use
  Company Number: CN-MYLANLABS-2022M1121290

PATIENT
  Age: 49 Year
  Sex: Female

DRUGS (3)
  1. CELEBREX [Suspect]
     Active Substance: CELECOXIB
     Indication: Arthralgia
     Dosage: 1 DOSAGE FORM, BID
     Route: 048
     Dates: start: 20221019, end: 20221021
  2. CELEBREX [Suspect]
     Active Substance: CELECOXIB
     Indication: Pain
  3. CELEBREX [Suspect]
     Active Substance: CELECOXIB
     Indication: Inflammation

REACTIONS (2)
  - Dysphonia [Recovering/Resolving]
  - Dyspnoea [Recovering/Resolving]

NARRATIVE: CASE EVENT DATE: 20221021
